FAERS Safety Report 9836801 (Version 1)
Quarter: 2013Q4

REPORT INFORMATION
  Report Type: Spontaneous
  Country: US (occurrence: None)
  Receive Date: 20131121
  Receipt Date: 20131121
  Transmission Date: 20140711
  Serious: Yes (Other)
  Sender: FDA-Public Use
  Company Number: 1000047910

PATIENT
  Age: 63 Year
  Sex: Female

DRUGS (4)
  1. TUDORZA PRESSAIR [Suspect]
     Indication: CHRONIC OBSTRUCTIVE PULMONARY DISEASE
     Dosage: 400 MCG, 2 IN 1 D
     Route: 048
     Dates: start: 201307, end: 201307
  2. ZYFLO (ZILEUTON) (ZILEUTON) [Concomitant]
  3. CALCIUM (CALCIUM) (CALCIUM) [Concomitant]
  4. DULERA (DULERA) (DULERA) [Concomitant]

REACTIONS (1)
  - Muscular weakness [None]
